FAERS Safety Report 5408983-8 (Version None)
Quarter: 2007Q3

REPORT INFORMATION
  Report Type: 
  Country: None (occurrence: None)
  Receive Date: 20070806
  Receipt Date: 20070731
  Transmission Date: 20080115
  Serious: Yes (Other)
  Sender: FDA-Public Use
  Company Number: 2007SP012194

PATIENT
  Age: 50 Year
  Sex: Male
  Weight: 79.3795 kg

DRUGS (9)
  1. PEG-INTRON [Suspect]
     Indication: HEPATITIS C
     Dosage: 120 MCG;QW;SC
     Route: 058
     Dates: start: 20070614
  2. RIBAVIRIN [Suspect]
     Indication: HEPATITIS C
     Dosage: 1000 MG;QD;PO
     Route: 048
     Dates: start: 20070614
  3. PROZAC [Concomitant]
  4. HYDROCHLOROTHIAZIDE [Concomitant]
  5. PREVACID [Concomitant]
  6. LISINOPRIL [Concomitant]
  7. ASPIRIN [Concomitant]
  8. KLONOPIN [Concomitant]
  9. ALBUTEROL [Concomitant]

REACTIONS (22)
  - ASTHENIA [None]
  - DEHYDRATION [None]
  - DIZZINESS [None]
  - FALL [None]
  - FATIGUE [None]
  - HAEMOGLOBIN DECREASED [None]
  - HALLUCINATION, VISUAL [None]
  - HEAD INJURY [None]
  - HEADACHE [None]
  - LIP HAEMORRHAGE [None]
  - LOSS OF CONSCIOUSNESS [None]
  - MOUTH INJURY [None]
  - NO THERAPEUTIC RESPONSE [None]
  - ORAL INTAKE REDUCED [None]
  - PAIN [None]
  - PERIORBITAL HAEMATOMA [None]
  - RETCHING [None]
  - RHINITIS [None]
  - SCRATCH [None]
  - THERMAL BURN [None]
  - VOMITING [None]
  - WEIGHT DECREASED [None]
